FAERS Safety Report 8560461-3 (Version None)
Quarter: 2012Q3

REPORT INFORMATION
  Report Type: 
  Country: None (occurrence: None)
  Receive Date: 20120802
  Receipt Date: 20120719
  Transmission Date: 20120928
  Serious: No
  Sender: FDA-Public Use
  Company Number: US-ASTRAZENECA-2012SE41806

PATIENT
  Age: 65 Year
  Sex: Female
  Weight: 77.1 kg

DRUGS (14)
  1. NEXIUM [Suspect]
     Indication: GASTROOESOPHAGEAL REFLUX DISEASE
     Route: 048
  2. LOSARTAN POTASSIUM [Concomitant]
     Indication: HYPERTENSION
  3. KLONOPIN [Concomitant]
     Indication: ANXIETY
  4. PRILOSEC OTC [Suspect]
     Dosage: GENERIC
     Route: 048
  5. KLONOPIN [Concomitant]
     Indication: DEPRESSION
  6. PRILOSEC OTC [Suspect]
     Route: 048
     Dates: start: 20120619
  7. TAGAMET [Concomitant]
  8. PROZAC [Concomitant]
     Indication: DEPRESSION
  9. NEXIUM [Suspect]
     Route: 048
  10. PRILOSEC [Suspect]
     Dosage: GENERIC
     Route: 048
  11. PROZAC [Concomitant]
     Indication: ANXIETY
  12. ZANTAC [Concomitant]
  13. PRILOSEC [Suspect]
     Route: 048
  14. PROTONIX [Concomitant]

REACTIONS (6)
  - IRRITABLE BOWEL SYNDROME [None]
  - INTENTIONAL DRUG MISUSE [None]
  - DRUG DOSE OMISSION [None]
  - MALAISE [None]
  - ABDOMINAL DISCOMFORT [None]
  - DRUG INEFFECTIVE [None]
